FAERS Safety Report 24253162 (Version 1)
Quarter: 2024Q3

REPORT INFORMATION
  Report Type: Spontaneous
  Country: US (occurrence: US)
  Receive Date: 20240827
  Receipt Date: 20240827
  Transmission Date: 20241017
  Serious: No
  Sender: TEVA
  Company Number: US-TEVA-VS-3233716

PATIENT
  Age: 83 Year
  Sex: Female

DRUGS (2)
  1. HYDROXYUREA [Suspect]
     Active Substance: HYDROXYUREA
     Indication: Product used for unknown indication
     Route: 065
  2. JAKAFI [Suspect]
     Active Substance: RUXOLITINIB
     Indication: Product used for unknown indication
     Dosage: 1/2 TAB EVERY OTHER DAY, MD TOLD HER TO SLOWLY TITRATE UP ON JAKAFI TO INTRODUCE IT SLOWLY
     Route: 048

REACTIONS (1)
  - Stomatitis [Unknown]
